FAERS Safety Report 21490528 (Version 4)
Quarter: 2023Q2

REPORT INFORMATION
  Report Type: Spontaneous
  Country: CA (occurrence: CA)
  Receive Date: 20221021
  Receipt Date: 20230503
  Transmission Date: 20230722
  Serious: Yes (Other)
  Sender: FDA-Public Use
  Company Number: CA-CELLTRION INC.-2022CA015800

PATIENT

DRUGS (18)
  1. INFLIXIMAB [Suspect]
     Active Substance: INFLIXIMAB
     Indication: Rheumatoid arthritis
     Dosage: WEEK 6 AND Q2WEEKS
     Route: 058
     Dates: start: 20220912
  2. INFLIXIMAB [Suspect]
     Active Substance: INFLIXIMAB
     Dosage: 120 MG, Q2WEEKS
     Route: 058
     Dates: start: 20230427
  3. FUROSEMIDE [Concomitant]
     Active Substance: FUROSEMIDE
  4. CLONIDINE [Concomitant]
     Active Substance: CLONIDINE
  5. SPIRONOLACTONE [Concomitant]
     Active Substance: SPIRONOLACTONE
  6. AMLODIPINE [Concomitant]
     Active Substance: AMLODIPINE BESYLATE
  7. METHOTREXATE [Concomitant]
     Active Substance: METHOTREXATE
     Dosage: 25MG SC Q 3 WEEKS
     Route: 058
  8. XARELTO [Concomitant]
     Active Substance: RIVAROXABAN
  9. MELOXICAM [Concomitant]
     Active Substance: MELOXICAM
     Dosage: 15MG PO PRN
     Route: 048
  10. ATORVASTATIN [Concomitant]
     Active Substance: ATORVASTATIN
  11. CHOLECALCIFEROL [Concomitant]
     Active Substance: CHOLECALCIFEROL
  12. CALCIUM [Concomitant]
     Active Substance: CALCIUM
  13. ACETAMINOPHEN [Concomitant]
     Active Substance: ACETAMINOPHEN
  14. LEUCOVORIN [Concomitant]
     Active Substance: LEUCOVORIN
  15. OMEPRAZOLE [Concomitant]
     Active Substance: OMEPRAZOLE
  16. BISOPROLOL [Concomitant]
     Active Substance: BISOPROLOL
  17. FLUTICASONE FUROATE [Concomitant]
     Active Substance: FLUTICASONE FUROATE
  18. TUDORZA PRESSAIR [Concomitant]
     Active Substance: ACLIDINIUM BROMIDE

REACTIONS (13)
  - Pneumonia legionella [Unknown]
  - Inflammation [Unknown]
  - Arthralgia [Unknown]
  - Arrhythmia [Not Recovered/Not Resolved]
  - Pulmonary oedema [Recovering/Resolving]
  - Blood creatinine increased [Recovering/Resolving]
  - Productive cough [Unknown]
  - Oropharyngeal pain [Unknown]
  - Chest discomfort [Not Recovered/Not Resolved]
  - Cough [Not Recovered/Not Resolved]
  - Arthralgia [Recovered/Resolved]
  - Peripheral swelling [Recovered/Resolved]
  - Intentional dose omission [Unknown]

NARRATIVE: CASE EVENT DATE: 20221010
